FAERS Safety Report 13543324 (Version 2)
Quarter: 2017Q2

REPORT INFORMATION
  Report Type: Report from Study
  Country: CA (occurrence: CA)
  Receive Date: 20170514
  Receipt Date: 20170605
  Transmission Date: 20170830
  Serious: Yes (Hospitalization, Other)
  Sender: FDA-Public Use
  Company Number: PHHY2016CA174883

PATIENT
  Age: 76 Year
  Sex: Female

DRUGS (2)
  1. SANDOSTATIN LAR DEPOT [Suspect]
     Active Substance: OCTREOTIDE ACETATE
     Indication: CARCINOID TUMOUR
     Dosage: 30 MG, QMO (EVERY 4 WEEKS)
     Route: 030
     Dates: start: 20161122
  2. IMODIUM [Concomitant]
     Active Substance: LOPERAMIDE HYDROCHLORIDE
     Indication: PRODUCT USED FOR UNKNOWN INDICATION
     Route: 065

REACTIONS (13)
  - Blood pressure systolic increased [Unknown]
  - Injection site pain [Unknown]
  - Flatulence [Not Recovered/Not Resolved]
  - Abdominal pain upper [Unknown]
  - Genital swelling [Unknown]
  - Diarrhoea [Unknown]
  - Malignant neoplasm progression [Unknown]
  - Laryngitis [Unknown]
  - Hepatic failure [Unknown]
  - Genital pain [Unknown]
  - Gait disturbance [Unknown]
  - Puncture site discharge [Unknown]
  - Ascites [Unknown]

NARRATIVE: CASE EVENT DATE: 2016
